FAERS Safety Report 11211882 (Version 1)
Quarter: 2015Q2

REPORT INFORMATION
  Report Type: Spontaneous
  Country: TW (occurrence: TW)
  Receive Date: 20150623
  Receipt Date: 20150623
  Transmission Date: 20150821
  Serious: Yes (Life-Threatening, Other)
  Sender: FDA-Public Use
  Company Number: TW-MYLANLABS-2015M1020314

PATIENT

DRUGS (1)
  1. TRETINOIN. [Suspect]
     Active Substance: TRETINOIN
     Indication: ACUTE PROMYELOCYTIC LEUKAEMIA
     Dosage: 45 MG/M2/DAY
     Route: 048

REACTIONS (10)
  - Bradycardia [Recovered/Resolved]
  - Delirium [Unknown]
  - Mucosal inflammation [Unknown]
  - Atrioventricular block complete [Recovered/Resolved]
  - Cardiac arrest [Recovered/Resolved]
  - Headache [Unknown]
  - Seizure [Unknown]
  - Paresis [Unknown]
  - Aphasia [Unknown]
  - Bone pain [Unknown]
